FAERS Safety Report 16596690 (Version 1)
Quarter: 2019Q3

REPORT INFORMATION
  Report Type: Report from Study
  Country: ES (occurrence: ES)
  Receive Date: 20190719
  Receipt Date: 20190719
  Transmission Date: 20191004
  Serious: Yes (Hospitalization)
  Sender: FDA-Public Use
  Company Number: ES-ACCORD-138957

PATIENT
  Age: 86 Year
  Sex: Male

DRUGS (8)
  1. ORFIDAL [Interacting]
     Active Substance: LORAZEPAM
     Indication: DEMENTIA ALZHEIMER^S TYPE
     Dosage: 0-0-1, STRENGTH: 1 MG, 50 TABLETS
     Route: 048
     Dates: start: 2018, end: 20190301
  2. DUPHALAC [Concomitant]
     Active Substance: LACTULOSE
     Route: 048
  3. HYDROCHLOROTHIAZIDE/VALSARTAN [Concomitant]
     Dosage: STRENGTH: 160 MG/12.5 MG, 28 TABLETS
     Route: 048
  4. PARACETAMOL [Concomitant]
     Active Substance: ACETAMINOPHEN
     Dosage: STRENGTH: 1G
     Route: 048
  5. MARIXINO [Concomitant]
     Indication: DEMENTIA ALZHEIMER^S TYPE
     Dosage: 20MG EVERY 24 HOURS
     Route: 048
     Dates: start: 2018, end: 20190301
  6. TRAZODONE [Suspect]
     Active Substance: TRAZODONE HYDROCHLORIDE
     Indication: INSOMNIA
     Dosage: STRENGTH: 100 MG, 0-0-1
     Route: 048
     Dates: start: 2017, end: 20190301
  7. PSICOTRIC [Interacting]
     Active Substance: QUETIAPINE FUMARATE
     Indication: COGNITIVE DISORDER
     Dosage: 0.5-0.5-2, STRENGTH: 50 MG, 60 TABLETS
     Route: 048
     Dates: start: 2018, end: 20190301
  8. DAONIL [Concomitant]
     Active Substance: GLYBURIDE
     Dosage: STRENGTH: 5 MG
     Route: 048

REACTIONS (2)
  - Depressed level of consciousness [Recovered/Resolved]
  - Drug interaction [Unknown]

NARRATIVE: CASE EVENT DATE: 2019
